FAERS Safety Report 6542353-4 (Version None)
Quarter: 2010Q1

REPORT INFORMATION
  Report Type: 
  Country: None (occurrence: None)
  Receive Date: 20100114
  Receipt Date: 20100114
  Transmission Date: 20100710
  Serious: Yes (Hospitalization)
  Sender: FDA-Public Use
  Company Number: None

PATIENT
  Age: 81 Year
  Sex: Female
  Weight: 76 kg

DRUGS (9)
  1. VALACYCLOVIR [Suspect]
     Indication: HERPES ZOSTER
     Dosage: 100MG TID PO
     Route: 048
     Dates: start: 20091120, end: 20091209
  2. TRAMADOL [Concomitant]
  3. ISOSORBIDE MONONITRATE [Concomitant]
  4. CLOPIDOGREL [Concomitant]
  5. ASPIRIN [Concomitant]
  6. LISINOPRIL [Concomitant]
  7. SERTRALINE HCL [Concomitant]
  8. PERPHENAZINE [Concomitant]
  9. MNETOPROLOL XL [Concomitant]

REACTIONS (7)
  - FALL [None]
  - HAEMATOMA [None]
  - HALLUCINATION [None]
  - HYPOTENSION [None]
  - MENTAL STATUS CHANGES [None]
  - RENAL FAILURE ACUTE [None]
  - SEPSIS [None]
